FAERS Safety Report 7861349-3 (Version None)
Quarter: 2011Q4

REPORT INFORMATION
  Report Type: 
  Country: None (occurrence: None)
  Receive Date: 20111027
  Receipt Date: 20111025
  Transmission Date: 20120403
  Serious: Yes (Hospitalization)
  Sender: FDA-Public Use
  Company Number: IT-BAYER-2011-104287

PATIENT
  Age: 34 Year
  Sex: Female

DRUGS (3)
  1. IBUPROFEN [Suspect]
     Dosage: 2.4 G, ONCE
     Route: 048
     Dates: start: 20110601, end: 20110601
  2. ALCOHOL [Concomitant]
  3. ASPIRIN [Suspect]
     Dosage: 20 G, ONCE
     Route: 048
     Dates: start: 20110601, end: 20110601

REACTIONS (2)
  - ABDOMINAL PAIN UPPER [None]
  - EPISTAXIS [None]
